FAERS Safety Report 22207742 (Version 15)
Quarter: 2023Q4

REPORT INFORMATION
  Report Type: Spontaneous
  Country: CA (occurrence: CA)
  Receive Date: 20230413
  Receipt Date: 20231004
  Transmission Date: 20240110
  Serious: Yes (Other)
  Sender: FDA-Public Use
  Company Number: CA-PFIZER INC-PV202300046076

PATIENT
  Age: 66 Year
  Sex: Female
  Weight: 57 kg

DRUGS (15)
  1. ZIRABEV [Suspect]
     Active Substance: BEVACIZUMAB-BVZR
     Indication: Vulval cancer
     Dosage: REPEAT X 8 GIVE IV OVER 30 MINUTES
     Route: 042
  2. ZIRABEV [Suspect]
     Active Substance: BEVACIZUMAB-BVZR
     Dosage: 855 MG
     Route: 042
     Dates: start: 20230321
  3. ZIRABEV [Suspect]
     Active Substance: BEVACIZUMAB-BVZR
     Dosage: 855 MG
     Route: 042
     Dates: start: 20230321
  4. ZIRABEV [Suspect]
     Active Substance: BEVACIZUMAB-BVZR
     Dosage: 855 MG
     Route: 042
     Dates: start: 20230410
  5. ZIRABEV [Suspect]
     Active Substance: BEVACIZUMAB-BVZR
     Dosage: 855 MG
     Route: 042
     Dates: start: 20230410
  6. ZIRABEV [Suspect]
     Active Substance: BEVACIZUMAB-BVZR
     Dosage: 855 MG
     Route: 042
     Dates: start: 20230508
  7. ZIRABEV [Suspect]
     Active Substance: BEVACIZUMAB-BVZR
     Dosage: 855 MG
     Route: 042
     Dates: start: 20230529
  8. ZIRABEV [Suspect]
     Active Substance: BEVACIZUMAB-BVZR
     Dosage: 855 MG
     Route: 042
     Dates: start: 20230529
  9. ZIRABEV [Suspect]
     Active Substance: BEVACIZUMAB-BVZR
     Dosage: 855 MG
     Route: 042
     Dates: start: 20230620
  10. ZIRABEV [Suspect]
     Active Substance: BEVACIZUMAB-BVZR
     Dosage: 855 MG, EVERY 3 WEEKS
     Route: 042
  11. ZIRABEV [Suspect]
     Active Substance: BEVACIZUMAB-BVZR
     Dosage: 353 MG, EVERY 3 WEEKS
     Route: 042
  12. ZIRABEV [Suspect]
     Active Substance: BEVACIZUMAB-BVZR
     Dosage: 695 MG, EVERY 3 WEEKS
     Route: 042
  13. ZIRABEV [Suspect]
     Active Substance: BEVACIZUMAB-BVZR
     Dosage: 695 MG
     Route: 042
     Dates: start: 20230815
  14. CARBOPLATIN [Concomitant]
     Active Substance: CARBOPLATIN
     Dosage: UNK
  15. PACLITAXEL [Concomitant]
     Active Substance: PACLITAXEL
     Dosage: UNK

REACTIONS (10)
  - Vulvovaginal injury [Unknown]
  - Haemoglobin decreased [Unknown]
  - Off label use [Unknown]
  - Product dose omission issue [Unknown]
  - Poor venous access [Unknown]
  - Platelet count decreased [Unknown]
  - Blood pressure fluctuation [Unknown]
  - Weight fluctuation [Unknown]
  - Fatigue [Unknown]
  - Weight decreased [Unknown]

NARRATIVE: CASE EVENT DATE: 20230101
